FAERS Safety Report 6660908-3 (Version None)
Quarter: 2010Q1

REPORT INFORMATION
  Report Type: 
  Country: None (occurrence: None)
  Receive Date: 20100326
  Receipt Date: 20100315
  Transmission Date: 20100710
  Serious: Yes (Hospitalization, Disabling)
  Sender: FDA-Public Use
  Company Number: B0542161A

PATIENT
  Sex: Female
  Weight: 79.2 kg

DRUGS (10)
  1. PAROXETINE HCL [Suspect]
     Indication: DEPRESSION
     Dosage: 20 MG/ PER DAY, ORAL
     Route: 048
     Dates: start: 20070611, end: 20070807
  2. SPIRONOLACTONE [Concomitant]
  3. POTASSIUM ASPARTATE [Concomitant]
  4. LIMAPROST [Concomitant]
  5. AMLODIPINE BESYLATE [Concomitant]
  6. ETODOLAC [Concomitant]
  7. RALOXIFENE HYDROCHLORIDE [Concomitant]
  8. CHINESE MEDICATION [Concomitant]
  9. COWPOX VIRUS VACC NON-GSK [Concomitant]
  10. METHYLCOBAL [Concomitant]

REACTIONS (4)
  - BLOOD CORTISOL ABNORMAL [None]
  - DECREASED APPETITE [None]
  - INAPPROPRIATE ANTIDIURETIC HORMONE SECRETION [None]
  - NAUSEA [None]
